FAERS Safety Report 8827220 (Version 1)
Quarter: 2012Q4

REPORT INFORMATION
  Report Type: Report from Study
  Country: US (occurrence: US)
  Receive Date: 20121005
  Receipt Date: 20121005
  Transmission Date: 20130627
  Serious: Yes (Hospitalization)
  Sender: FDA-Public Use
  Company Number: US-ROCHE-CID000000002130149

PATIENT
  Age: 68 Year
  Sex: Female
  Weight: 91.4 kg

DRUGS (2)
  1. AVASTIN [Suspect]
     Indication: OVARIAN CANCER
     Dosage: Date of last dose: 31/Aug/2012
     Route: 065
     Dates: start: 20120203
  2. EVEROLIMUS [Suspect]
     Indication: OVARIAN CANCER
     Dosage: Daily
     Route: 065

REACTIONS (6)
  - Cellulitis [Recovering/Resolving]
  - Abdominal distension [Not Recovered/Not Resolved]
  - Dyspnoea [Not Recovered/Not Resolved]
  - Oedema peripheral [Not Recovered/Not Resolved]
  - Localised oedema [Not Recovered/Not Resolved]
  - Fatigue [Not Recovered/Not Resolved]
